FAERS Safety Report 8459274-2 (Version None)
Quarter: 2012Q2

REPORT INFORMATION
  Report Type: 
  Country: None (occurrence: None)
  Receive Date: 20120622
  Receipt Date: 20120612
  Transmission Date: 20120825
  Serious: Yes (Hospitalization)
  Sender: FDA-Public Use
  Company Number: JP-VERTEX PHARMACEUTICALS INC.-AE-2012-008913

PATIENT
  Age: 64 Year
  Sex: Female

DRUGS (3)
  1. INCIVEK [Suspect]
     Indication: HEPATITIS C
     Route: 048
     Dates: start: 20120417, end: 20120515
  2. PEGINTERFERON ALFA-2B [Concomitant]
     Route: 051
     Dates: start: 20120417
  3. RIBAVIRIN [Concomitant]
     Route: 048
     Dates: start: 20120417

REACTIONS (1)
  - MALAISE [None]
